FAERS Safety Report 19724366 (Version 1)
Quarter: 2021Q3

REPORT INFORMATION
  Report Type: Report from Study
  Country: US (occurrence: US)
  Receive Date: 20210819
  Receipt Date: 20210819
  Transmission Date: 20211014
  Serious: No
  Sender: FDA-Public Use
  Company Number: NVSC2021US186327

PATIENT
  Sex: Female

DRUGS (1)
  1. AFINITOR [Suspect]
     Active Substance: EVEROLIMUS
     Indication: ASTROCYTOMA, LOW GRADE
     Dosage: 4 MG, QD
     Route: 048
     Dates: start: 20210609

REACTIONS (3)
  - COVID-19 [Unknown]
  - Headache [Unknown]
  - Nasal congestion [Unknown]
